FAERS Safety Report 20096273 (Version 1)
Quarter: 2021Q4

REPORT INFORMATION
  Report Type: Report from Study
  Country: JP (occurrence: JP)
  Receive Date: 20211122
  Receipt Date: 20211122
  Transmission Date: 20220303
  Serious: Yes (Other)
  Sender: FDA-Public Use
  Company Number: JP-RECORDATI RARE DISEASE INC.-2021004771

PATIENT
  Sex: Female
  Weight: .871 kg

DRUGS (23)
  1. NEOPROFEN [Suspect]
     Active Substance: IBUPROFEN LYSINE
     Indication: Patent ductus arteriosus
     Dosage: 9 MILLIGRAM
     Route: 042
     Dates: start: 20201129, end: 20201129
  2. NEOPROFEN [Suspect]
     Active Substance: IBUPROFEN LYSINE
     Dosage: 4.5 MILLIGRAM
     Route: 042
     Dates: start: 20201130, end: 20201130
  3. NEOPROFEN [Suspect]
     Active Substance: IBUPROFEN LYSINE
     Dosage: 4.5 MILLIGRAM
     Route: 042
     Dates: start: 20201201, end: 20201201
  4. DOPAMINE [Concomitant]
     Active Substance: DOPAMINE HYDROCHLORIDE
     Indication: Circulatory collapse
     Dosage: UNK
     Route: 042
     Dates: start: 20201128, end: 20201129
  5. AMIKACIN [Concomitant]
     Active Substance: AMIKACIN
     Indication: Infection prophylaxis
     Dosage: UNK
     Route: 042
     Dates: start: 20201128, end: 20201130
  6. DOBUTREX [Concomitant]
     Active Substance: DOBUTAMINE HYDROCHLORIDE
     Indication: Peripheral vascular disorder
     Dosage: UNK
     Route: 042
     Dates: start: 20201128, end: 20201201
  7. FACTOR XIII CONCENTRATE (HUMAN) [Concomitant]
     Active Substance: FACTOR XIII CONCENTRATE (HUMAN)
     Indication: Coagulation factor deficiency
     Dosage: UNK
     Route: 042
     Dates: start: 20201128, end: 20201201
  8. FACTOR XIII CONCENTRATE (HUMAN) [Concomitant]
     Active Substance: FACTOR XIII CONCENTRATE (HUMAN)
     Indication: Prophylaxis
  9. ACOALAN [Concomitant]
     Indication: Coagulation factor deficiency
     Dosage: UNK
     Route: 042
     Dates: start: 20201128, end: 20201201
  10. ACOALAN [Concomitant]
     Indication: Prophylaxis
  11. CLAFORAN [Concomitant]
     Active Substance: CEFOTAXIME SODIUM
     Indication: Infection prophylaxis
     Dosage: UNK
     Route: 042
     Dates: start: 20201128, end: 20201202
  12. VICCILLIN [AMPICILLIN SODIUM] [Concomitant]
     Indication: Infection prophylaxis
     Dosage: UNK
     Route: 042
     Dates: start: 20201128, end: 20201202
  13. VENOGLOBULIN [Concomitant]
     Active Substance: HUMAN IMMUNOGLOBULIN G
     Indication: Hypogammaglobulinaemia
     Dosage: UNK
     Route: 042
     Dates: start: 20201128, end: 20201202
  14. VENOGLOBULIN [Concomitant]
     Active Substance: HUMAN IMMUNOGLOBULIN G
     Indication: Prophylaxis
  15. CALCIUM GLUCONATE [Concomitant]
     Active Substance: CALCIUM GLUCONATE
     Indication: Parenteral nutrition
     Dosage: UNK
     Route: 042
     Dates: start: 20201128, end: 20201202
  16. MENATETRENONE [Concomitant]
     Active Substance: MENATETRENONE
     Indication: Coagulation factor deficiency
     Dosage: UNK
     Route: 042
     Dates: start: 20201128, end: 20201203
  17. MENATETRENONE [Concomitant]
     Active Substance: MENATETRENONE
     Indication: Prophylaxis
  18. MICAFUNGIN SODIUM [Concomitant]
     Active Substance: MICAFUNGIN SODIUM
     Indication: Infection prophylaxis
     Dosage: UNK
     Route: 042
     Dates: start: 20201128, end: 20201203
  19. MICONAZOLE [Concomitant]
     Active Substance: MICONAZOLE
     Indication: Infection prophylaxis
     Dosage: UNK
     Route: 048
     Dates: start: 20201128, end: 20201219
  20. LEVOFLOXACIN [Concomitant]
     Active Substance: LEVOFLOXACIN
     Indication: Infection prophylaxis
     Dosage: UNK
     Route: 047
     Dates: start: 20201128, end: 20201212
  21. SOYBEAN OIL [Concomitant]
     Active Substance: SOYBEAN OIL
     Indication: Parenteral nutrition
     Dosage: UNK
     Route: 042
     Dates: start: 20201130, end: 20201202
  22. CAFFEINE [Concomitant]
     Active Substance: CAFFEINE
     Indication: Apnoeic attack
     Dosage: UNK
     Route: 042
     Dates: start: 20201130, end: 20201208
  23. CAFFEINE [Concomitant]
     Active Substance: CAFFEINE
     Indication: Prophylaxis

REACTIONS (2)
  - Gastric haemorrhage [Recovering/Resolving]
  - Abdominal distension [Recovering/Resolving]

NARRATIVE: CASE EVENT DATE: 20201201
